FAERS Safety Report 12322166 (Version 2)
Quarter: 2016Q2

REPORT INFORMATION
  Report Type: Spontaneous
  Country: FR (occurrence: FR)
  Receive Date: 20160502
  Receipt Date: 20160518
  Transmission Date: 20160815
  Serious: Yes (Hospitalization)
  Sender: FDA-Public Use
  Company Number: FR-009507513-1604FRA015740

PATIENT
  Age: 68 Year
  Sex: Male

DRUGS (18)
  1. ORBENINE [Suspect]
     Active Substance: CLOXACILLIN SODIUM
     Indication: STAPHYLOCOCCAL BACTERAEMIA
     Dosage: 1.5 G, QID
     Route: 048
     Dates: start: 20160303, end: 20160310
  2. OFLOCET (OFLOXACIN) [Suspect]
     Active Substance: OFLOXACIN
     Dosage: 1 DF, QD
     Route: 042
     Dates: start: 20160316, end: 20160322
  3. TAHOR [Concomitant]
     Active Substance: ATORVASTATIN CALCIUM
  4. OFLOCET (OFLOXACIN) [Suspect]
     Active Substance: OFLOXACIN
     Indication: STAPHYLOCOCCAL BACTERAEMIA
     Dosage: 200 MG, BID
     Route: 048
     Dates: start: 20160303, end: 20160310
  5. ERYTHROMYCIN. [Suspect]
     Active Substance: ERYTHROMYCIN
     Indication: STAPHYLOCOCCAL BACTERAEMIA
     Dosage: 500 MG, QID
     Route: 042
     Dates: start: 20160301, end: 20160303
  6. GAVISCON (ALGINIC ACID (+) ALUMINUM HYDROXIDE (+) MAGNESIUM TRISILICAT [Concomitant]
     Active Substance: ALGINIC ACID\ALUMINUM HYDROXIDE\MAGNESIUM TRISILICATE
  7. OFLOCET (OFLOXACIN) [Suspect]
     Active Substance: OFLOXACIN
     Dosage: 200 MG, QD
     Route: 048
     Dates: start: 20160323, end: 20160325
  8. CEFAZOLINE MYLAN [Suspect]
     Active Substance: CEFAZOLIN SODIUM
     Dosage: UNK
     Route: 042
     Dates: start: 20160318, end: 20160325
  9. FLAGYL [Suspect]
     Active Substance: METRONIDAZOLE\METRONIDAZOLE HYDROCHLORIDE
     Indication: CLOSTRIDIUM DIFFICILE COLITIS
     Dosage: 1 DF, TID
     Route: 048
     Dates: start: 20160314, end: 20160316
  10. CARDENSIEL [Concomitant]
     Active Substance: BISOPROLOL FUMARATE
  11. FIDAXOMICIN [Suspect]
     Active Substance: FIDAXOMICIN
     Indication: CLOSTRIDIUM DIFFICILE COLITIS
     Dosage: 1 DF, BID
     Route: 048
     Dates: start: 20160316, end: 20160325
  12. OFLOCET (OFLOXACIN) [Suspect]
     Active Substance: OFLOXACIN
     Indication: STAPHYLOCOCCAL BACTERAEMIA
     Dosage: 1 DF, BID
     Route: 042
     Dates: start: 20160223, end: 20160303
  13. LASILIX [Concomitant]
     Active Substance: FUROSEMIDE
  14. CORDARONE [Concomitant]
     Active Substance: AMIODARONE HYDROCHLORIDE
  15. CACIT [Concomitant]
     Active Substance: CALCIUM\VITAMIN D
  16. ORBENINE [Suspect]
     Active Substance: CLOXACILLIN SODIUM
     Indication: STAPHYLOCOCCAL BACTERAEMIA
     Dosage: 1 DF, QID
     Route: 042
     Dates: start: 20160223, end: 20160303
  17. KARDEGIC [Concomitant]
     Active Substance: ASPIRIN LYSINE
  18. FUNGIZONE [Concomitant]
     Active Substance: AMPHOTERICIN B

REACTIONS (3)
  - Eosinophilia [Recovered/Resolved]
  - Acute kidney injury [Recovered/Resolved]
  - Condition aggravated [Recovered/Resolved]

NARRATIVE: CASE EVENT DATE: 2016
